FAERS Safety Report 17427286 (Version 1)
Quarter: 2020Q1

REPORT INFORMATION
  Report Type: Report from Study
  Country: None (occurrence: US)
  Receive Date: 20200218
  Receipt Date: 20200218
  Transmission Date: 20200409
  Serious: Yes (Other)
  Sender: FDA-Public Use
  Company Number: US-ABBVIE-19K-163-3178214-00

PATIENT
  Age: 68 Year
  Sex: Male
  Weight: 46.31 kg

DRUGS (1)
  1. HUMIRA [Suspect]
     Active Substance: ADALIMUMAB
     Indication: PSORIATIC ARTHROPATHY
     Route: 058

REACTIONS (2)
  - Swelling [Recovering/Resolving]
  - Intervertebral disc injury [Unknown]

NARRATIVE: CASE EVENT DATE: 201903
